FAERS Safety Report 21790113 (Version 1)
Quarter: 2022Q4

REPORT INFORMATION
  Report Type: Spontaneous
  Country: US (occurrence: US)
  Receive Date: 20221228
  Receipt Date: 20221228
  Transmission Date: 20230112
  Serious: Yes (Hospitalization)
  Sender: FDA-Public Use
  Company Number: US-MYLANLABS-2022M1146297

PATIENT
  Sex: Female

DRUGS (6)
  1. OGIVRI [Interacting]
     Active Substance: TRASTUZUMAB-DKST
     Indication: Product used for unknown indication
     Dosage: UNK
     Route: 065
  2. OGIVRI [Interacting]
     Active Substance: TRASTUZUMAB-DKST
     Dosage: UNK (RE-STARTED ON 14-NOV-2022)
     Route: 065
  3. TUKYSA [Interacting]
     Active Substance: TUCATINIB
     Indication: Breast cancer stage IV
     Dosage: UNK
     Route: 065
  4. TUKYSA [Interacting]
     Active Substance: TUCATINIB
     Dosage: UNK (RE-STARTED ON 14-NOV-2022)
     Route: 065
  5. XELODA [Interacting]
     Active Substance: CAPECITABINE
     Indication: Product used for unknown indication
     Dosage: UNK
     Route: 065
  6. XELODA [Interacting]
     Active Substance: CAPECITABINE
     Dosage: UNK (RE-STARTED ON 14-NOV-2022)
     Route: 065

REACTIONS (5)
  - Seizure [Recovering/Resolving]
  - Drug interaction [Unknown]
  - Amnesia [Recovering/Resolving]
  - Blood pressure increased [Unknown]
  - Oxygen saturation decreased [Unknown]

NARRATIVE: CASE EVENT DATE: 20221029
